FAERS Safety Report 8315012-5 (Version None)
Quarter: 2012Q2

REPORT INFORMATION
  Report Type: 
  Country: None (occurrence: None)
  Receive Date: 20120426
  Receipt Date: 20120312
  Transmission Date: 20120825
  Serious: No
  Sender: FDA-Public Use
  Company Number: US-MUTUAL PHARMACEUTICAL COMPANY, INC.-CLCY20120046

PATIENT
  Sex: Male
  Weight: 66.284 kg

DRUGS (4)
  1. ASPIRIN [Concomitant]
     Indication: CARDIOVASCULAR EVENT PROPHYLAXIS
     Route: 065
     Dates: start: 20120301
  2. COLCRYS [Suspect]
     Indication: GOUT
     Route: 048
     Dates: start: 20120306, end: 20120311
  3. WARFARIN SODIUM [Concomitant]
     Indication: CARDIOVASCULAR EVENT PROPHYLAXIS
     Route: 065
  4. BRILINTA [Concomitant]
     Indication: CARDIOVASCULAR EVENT PROPHYLAXIS
     Route: 065
     Dates: start: 20120301

REACTIONS (1)
  - DYSPNOEA EXERTIONAL [None]
